FAERS Safety Report 19520702 (Version 1)
Quarter: 2021Q3

REPORT INFORMATION
  Report Type: Other
  Country: TR (occurrence: TR)
  Receive Date: 20210712
  Receipt Date: 20210712
  Transmission Date: 20211014
  Serious: Yes (Other)
  Sender: FDA-Public Use
  Company Number: TR-ROCHE-2868656

PATIENT

DRUGS (1)
  1. TOCILIZUMAB. [Suspect]
     Active Substance: TOCILIZUMAB
     Indication: COVID-19
     Route: 042

REACTIONS (2)
  - Bacteraemia [Unknown]
  - Pneumonia bacterial [Unknown]
